FAERS Safety Report 5986674-2 (Version None)
Quarter: 2008Q4

REPORT INFORMATION
  Report Type: 
  Country: None (occurrence: None)
  Receive Date: 20081203
  Receipt Date: 20081118
  Transmission Date: 20090506
  Serious: Yes (Other)
  Sender: FDA-Public Use
  Company Number: 2008S1020759

PATIENT
  Age: 60 Year
  Sex: Female

DRUGS (2)
  1. TAMOXIFEN (TAMOXIFEN) (20 MG) [Suspect]
     Indication: BREAST CANCER RECURRENT
     Dosage: 20 MG;ORAL
     Route: 048
     Dates: start: 20081001
  2. VENLAFAXINE HCL [Suspect]
     Indication: DEPRESSION
     Dosage: 225 MG;ORAL
     Route: 048
     Dates: start: 20020101

REACTIONS (1)
  - DEPRESSED MOOD [None]
